FAERS Safety Report 5973575-9 (Version None)
Quarter: 2008Q4

REPORT INFORMATION
  Report Type: 
  Country: None (occurrence: None)
  Receive Date: 20081201
  Receipt Date: 20080314
  Transmission Date: 20090506
  Serious: Yes (Death, Hospitalization)
  Sender: FDA-Public Use
  Company Number: BR-NOVOPROD-264003

PATIENT

DRUGS (4)
  1. NOVOSEVEN [Suspect]
     Indication: TRAUMATIC HAEMORRHAGE
     Dosage: 2 DOSES
     Route: 042
     Dates: start: 20070527, end: 20070527
  2. ETOMIDATE [Concomitant]
     Indication: SEDATION
     Dosage: 30 MG, QD
     Route: 042
     Dates: start: 20070527, end: 20070527
  3. SUCCINYLCHOLINE CHLORIDE [Concomitant]
     Indication: SEDATION
     Dosage: 100 MG, QD
     Route: 042
     Dates: start: 20070527, end: 20070527
  4. ISOFLURANE [Concomitant]
     Indication: SEDATION
     Dosage: 100 %, UNK
     Route: 042
     Dates: start: 20070527, end: 20070527

REACTIONS (2)
  - CARDIAC ARREST [None]
  - SHOCK HAEMORRHAGIC [None]
